FAERS Safety Report 11525471 (Version 2)
Quarter: 2015Q4

REPORT INFORMATION
  Report Type: Report from Study
  Country: JP (occurrence: JP)
  Receive Date: 20150918
  Receipt Date: 20151230
  Transmission Date: 20160304
  Serious: Yes (Hospitalization, Other)
  Sender: FDA-Public Use
  Company Number: JP-GLAXOSMITHKLINE-JP2015JPN132386

PATIENT
  Age: 61 Year
  Sex: Female

DRUGS (28)
  1. LAMOTRIGINE. [Suspect]
     Active Substance: LAMOTRIGINE
     Dosage: 5 MG, QD
     Route: 048
     Dates: start: 20111213, end: 20120116
  2. TEGRETOL [Concomitant]
     Active Substance: CARBAMAZEPINE
     Dosage: 50 MG, 1D
     Dates: start: 20110906
  3. KEPPRA [Concomitant]
     Active Substance: LEVETIRACETAM
     Indication: PARTIAL SEIZURES
     Dosage: 250 MG, 1D
     Dates: start: 20111129, end: 20111212
  4. KEPPRA [Concomitant]
     Active Substance: LEVETIRACETAM
     Dosage: 500 MG, 1D
     Dates: start: 20111213, end: 20120116
  5. SAHNE (JAPAN) [Concomitant]
  6. OXAROL [Concomitant]
     Active Substance: MAXACALCITOL
  7. LAMOTRIGINE. [Suspect]
     Active Substance: LAMOTRIGINE
     Dosage: 25 MG, QD
     Route: 048
     Dates: start: 20110301, end: 20110323
  8. LAMOTRIGINE. [Suspect]
     Active Substance: LAMOTRIGINE
     Dosage: 7 MG, QD
     Route: 048
     Dates: start: 20111129, end: 20111212
  9. TEGRETOL [Concomitant]
     Active Substance: CARBAMAZEPINE
     Indication: PARTIAL SEIZURES
     Dosage: 200 MG, 1D
     Dates: end: 20110606
  10. TEGRETOL [Concomitant]
     Active Substance: CARBAMAZEPINE
     Dosage: 100 MG, 1D
     Dates: start: 20110802, end: 20110905
  11. TAKEPRON [Concomitant]
     Active Substance: LANSOPRAZOLE
  12. ADONA (AC-17) [Concomitant]
  13. LAMOTRIGINE. [Suspect]
     Active Substance: LAMOTRIGINE
     Dosage: 12 MG, QD
     Route: 048
     Dates: start: 20111101, end: 20111128
  14. MICARDIS [Concomitant]
     Active Substance: TELMISARTAN
  15. ATARAX [Concomitant]
     Active Substance: HYDROXYZINE\HYDROXYZINE HYDROCHLORIDE
  16. LAMOTRIGINE. [Suspect]
     Active Substance: LAMOTRIGINE
     Indication: PARTIAL SEIZURES
     Dosage: 25 MG, QOD
     Route: 048
     Dates: start: 20110208, end: 20110228
  17. DEPAKENE [Concomitant]
     Active Substance: VALPROIC ACID
     Indication: PARTIAL SEIZURES
     Dosage: 800 MG, 1D
  18. ALLELOCK [Concomitant]
     Active Substance: OLOPATADINE HYDROCHLORIDE
  19. LAMOTRIGINE. [Suspect]
     Active Substance: LAMOTRIGINE
     Dosage: 10 MG, QD
     Route: 048
     Dates: start: 20111004, end: 20111031
  20. DERMOVATE [Concomitant]
     Active Substance: CLOBETASOL
  21. BONALON [Concomitant]
     Active Substance: ALENDRONATE SODIUM
  22. POLYFUL [Concomitant]
     Active Substance: CALCIUM POLYCARBOPHIL
  23. TALION (JAPAN) [Concomitant]
     Active Substance: BEPOTASTINE
  24. ANTEBATE [Concomitant]
     Active Substance: BETAMETHASONE DIPROPIONATE
  25. LAMOTRIGINE. [Suspect]
     Active Substance: LAMOTRIGINE
     Dosage: 25 MG, QOD
     Route: 048
     Dates: start: 20110324, end: 20111003
  26. TEGRETOL [Concomitant]
     Active Substance: CARBAMAZEPINE
     Dosage: 150 MG, 1D
     Dates: start: 20110607, end: 20110801
  27. CRESTOR [Concomitant]
     Active Substance: ROSUVASTATIN CALCIUM
  28. STROMECTOL [Concomitant]
     Active Substance: IVERMECTIN

REACTIONS (6)
  - Memory impairment [Recovered/Resolved]
  - Pruritus [Recovered/Resolved]
  - Gastroenteritis [Recovered/Resolved]
  - Retinal detachment [Recovered/Resolved with Sequelae]
  - Dizziness [Recovered/Resolved]
  - Rash [Recovered/Resolved]

NARRATIVE: CASE EVENT DATE: 20110309
